FAERS Safety Report 7763973-5 (Version None)
Quarter: 2011Q3

REPORT INFORMATION
  Report Type: 
  Country: None (occurrence: None)
  Receive Date: 20110921
  Receipt Date: 20110913
  Transmission Date: 20111222
  Serious: Yes (Hospitalization)
  Sender: FDA-Public Use
  Company Number: JP-GENZYME-THYM-1002771

PATIENT
  Sex: Female
  Weight: 44 kg

DRUGS (11)
  1. THYMOGLOBULIN [Suspect]
     Dosage: 165 MG, QD
     Route: 042
     Dates: start: 20110217, end: 20110217
  2. THYMOGLOBULIN [Suspect]
     Dosage: 165 MG, QD
     Route: 042
     Dates: start: 20110218, end: 20110219
  3. FILGRASTIM [Concomitant]
     Indication: PROPHYLAXIS
     Dosage: UNK
     Dates: start: 20110219, end: 20110220
  4. CEFEPIME HYDROCHLORIDE [Concomitant]
     Indication: INFECTION PROPHYLAXIS
     Dosage: UNK
     Dates: start: 20110219, end: 20110225
  5. ITRACONAZOLE [Concomitant]
     Indication: INFECTION PROPHYLAXIS
     Dosage: UNK
     Dates: start: 20110217, end: 20110301
  6. THYMOGLOBULIN [Suspect]
     Indication: APLASTIC ANAEMIA
     Dosage: 2.5 MG, ONCE
     Route: 042
     Dates: start: 20110217, end: 20110217
  7. METHYLPREDNISOLONE SODIUM SUCCINATE [Concomitant]
     Indication: PROPHYLAXIS
     Dosage: UNK
     Dates: start: 20110217, end: 20110228
  8. CYCLOSPORINE [Concomitant]
     Indication: APLASTIC ANAEMIA
     Dosage: UNK
     Dates: start: 20110217
  9. PREDNISOLONE [Concomitant]
     Indication: PROPHYLAXIS
     Dosage: UNK
     Dates: start: 20110301
  10. RED BLOOD CELLS, CONCENTRATED [Concomitant]
     Indication: APLASTIC ANAEMIA
     Dosage: UNK
     Dates: start: 20110215, end: 20110803
  11. PLATELETS, CONCENTRATED [Concomitant]
     Indication: APLASTIC ANAEMIA
     Dosage: UNK
     Dates: start: 20110215, end: 20110715

REACTIONS (2)
  - LIVER DISORDER [None]
  - PYREXIA [None]
